FAERS Safety Report 7528118-5 (Version None)
Quarter: 2011Q2

REPORT INFORMATION
  Report Type: 
  Country: None (occurrence: None)
  Receive Date: 20110607
  Receipt Date: 20100905
  Transmission Date: 20111010
  Serious: No
  Sender: FDA-Public Use
  Company Number: US-ASTRAZENECA-2010SE42265

PATIENT
  Sex: Female

DRUGS (3)
  1. PRILOSEC [Suspect]
     Route: 048
  2. BICARB [Concomitant]
  3. PRILOSEC OTC [Suspect]
     Indication: DYSPEPSIA
     Dosage: 1 TABS DAILY
     Route: 048

REACTIONS (3)
  - FLATULENCE [None]
  - RENAL DISORDER [None]
  - GASTROINTESTINAL SOUNDS ABNORMAL [None]
